FAERS Safety Report 26213128 (Version 1)
Quarter: 2025Q4

REPORT INFORMATION
  Report Type: Spontaneous
  Country: AU (occurrence: AU)
  Receive Date: 20251230
  Receipt Date: 20251230
  Transmission Date: 20260117
  Serious: Yes (Other)
  Sender: BAYER HEALTHCARE PHARMACEUTICALS INC.
  Company Number: AU-BAYER-2025A160113

PATIENT
  Age: 73 Year

DRUGS (10)
  1. XARELTO [Suspect]
     Active Substance: RIVAROXABAN
     Dosage: 20 MG MANE
     Dates: end: 202411
  2. FINERENONE [Suspect]
     Active Substance: FINERENONE
     Dosage: 10 MG
     Dates: start: 202404, end: 202404
  3. FINERENONE [Suspect]
     Active Substance: FINERENONE
     Dosage: 20 MG
     Dates: start: 202404
  4. METOPROLOL [Concomitant]
     Active Substance: METOPROLOL
     Dosage: 25 MG, BID
     Dates: end: 202203
  5. METOPROLOL [Concomitant]
     Active Substance: METOPROLOL
     Dosage: 50 MG, BID
     Dates: start: 202203
  6. DIGOXIN [Concomitant]
     Active Substance: DIGOXIN
     Dosage: 62.5UG X2 MANE
     Dates: end: 202203
  7. DIGOXIN [Concomitant]
     Active Substance: DIGOXIN
     Dosage: 125MCG DAILY
     Dates: start: 202203
  8. HYDROCHLOROTHIAZIDE\TELMISARTAN [Concomitant]
     Active Substance: HYDROCHLOROTHIAZIDE\TELMISARTAN
     Dosage: 80/12.5MG MANE
  9. LERCANIDIPINE HYDROCHLORIDE [Concomitant]
     Active Substance: LERCANIDIPINE HYDROCHLORIDE
     Dosage: 10MG NOCTE
  10. DUTASTERIDE\TAMSULOSIN [Concomitant]
     Active Substance: DUTASTERIDE\TAMSULOSIN
     Dosage: 500/400UG NOCTE

REACTIONS (17)
  - Rectal haemorrhage [None]
  - Coronary artery disease [None]
  - Atrial fibrillation [None]
  - Prostate cancer [None]
  - Radiation proctitis [None]
  - Dyspnoea exertional [Recovering/Resolving]
  - Oedema peripheral [Recovered/Resolved]
  - Iron deficiency anaemia [None]
  - Haematuria [None]
  - Chest pain [None]
  - Oedema peripheral [Recovered/Resolved]
  - Nipple pain [None]
  - Breast pain [None]
  - Gynaecomastia [None]
  - Dyspnoea exertional [Recovered/Resolved]
  - Increased dose administered [None]
  - Glomerular filtration rate decreased [None]

NARRATIVE: CASE EVENT DATE: 20220301
